FAERS Safety Report 18210859 (Version 4)
Quarter: 2024Q2

REPORT INFORMATION
  Report Type: Spontaneous
  Country: US (occurrence: US)
  Receive Date: 20200830
  Receipt Date: 20240611
  Transmission Date: 20240715
  Serious: No
  Sender: FDA-Public Use
  Company Number: US-AMGEN INC.-USASP2020139248

PATIENT
  Age: 58 Year
  Sex: Female

DRUGS (2)
  1. ERENUMAB [Suspect]
     Active Substance: ERENUMAB
     Indication: Migraine
     Dosage: UNK
     Route: 065
  2. RIMEGEPANT [Concomitant]
     Active Substance: RIMEGEPANT
     Indication: Prophylaxis
     Dosage: UNK MILLIGRAM, UNK
     Route: 048

REACTIONS (1)
  - Dizziness [Recovered/Resolved]
